FAERS Safety Report 8238545-9 (Version None)
Quarter: 2012Q1

REPORT INFORMATION
  Report Type: 
  Country: None (occurrence: None)
  Receive Date: 20120327
  Receipt Date: 20120320
  Transmission Date: 20120608
  Serious: Yes (Hospitalization)
  Sender: FDA-Public Use
  Company Number: US-ASTRAZENECA-2012SE19205

PATIENT
  Age: 45 Year
  Sex: Female
  Weight: 61.7 kg

DRUGS (6)
  1. SEROQUEL [Suspect]
     Indication: SLEEP DISORDER
     Route: 048
     Dates: start: 20110101
  2. SEROQUEL [Suspect]
     Indication: ANXIETY
     Route: 048
     Dates: start: 20110101
  3. SEROQUEL [Suspect]
     Indication: BIPOLAR I DISORDER
     Route: 048
     Dates: start: 20110101
  4. CELEXA [Concomitant]
     Indication: ANXIETY
  5. SEROQUEL [Suspect]
     Indication: BIPOLAR DISORDER
     Route: 048
     Dates: start: 20110101
  6. KLONOPIN [Concomitant]
     Indication: BIPOLAR DISORDER

REACTIONS (8)
  - HEADACHE [None]
  - CARDIAC DISORDER [None]
  - HYPERTENSION [None]
  - HYPOAESTHESIA [None]
  - ARTHRITIS [None]
  - THROAT TIGHTNESS [None]
  - BLINDNESS [None]
  - PARAESTHESIA [None]
